FAERS Safety Report 8309445-0 (Version None)
Quarter: 2012Q2

REPORT INFORMATION
  Report Type: 
  Country: None (occurrence: None)
  Receive Date: 20120424
  Receipt Date: 20120424
  Transmission Date: 20120825
  Serious: Yes (Hospitalization)
  Sender: FDA-Public Use
  Company Number: None

PATIENT
  Age: 57 Year
  Sex: Female
  Weight: 90.9 kg

DRUGS (1)
  1. ALENDRONATE SODIUM [Suspect]
     Indication: OSTEOPENIA
     Dosage: 70 MG ONCE/WEEK ORAL
     Route: 048
     Dates: start: 20020101, end: 20050101

REACTIONS (4)
  - STRESS FRACTURE [None]
  - FALL [None]
  - PAIN IN EXTREMITY [None]
  - FEMUR FRACTURE [None]
